FAERS Safety Report 8421709-9 (Version None)
Quarter: 2012Q2

REPORT INFORMATION
  Report Type: 
  Country: None (occurrence: None)
  Receive Date: 20120608
  Receipt Date: 20111216
  Transmission Date: 20120825
  Serious: No
  Sender: FDA-Public Use
  Company Number: US-GLAXOSMITHKLINE-A0958391A

PATIENT
  Age: 1 Year
  Sex: Male

DRUGS (2)
  1. ALTABAX [Suspect]
     Indication: FUNGAL SKIN INFECTION
     Dosage: 1APP FOUR TIMES PER DAY
     Route: 061
     Dates: start: 20110701, end: 20110701
  2. NO CONCURRENT MEDICATION [Concomitant]

REACTIONS (1)
  - DRUG INEFFECTIVE [None]
